FAERS Safety Report 20072604 (Version 1)
Quarter: 2021Q4

REPORT INFORMATION
  Report Type: Spontaneous
  Country: HR (occurrence: HR)
  Receive Date: 20211116
  Receipt Date: 20211116
  Transmission Date: 20220304
  Serious: Yes (Other)
  Sender: FDA-Public Use
  Company Number: None

PATIENT
  Age: 30 Year
  Sex: Female

DRUGS (14)
  1. ACETAMINOPHEN [Suspect]
     Active Substance: ACETAMINOPHEN
     Indication: Product used for unknown indication
     Dosage: 17 TBL OD 500 MG
     Route: 048
     Dates: start: 20210616, end: 20210616
  2. ACETAMINOPHEN\TRAMADOL HYDROCHLORIDE [Suspect]
     Active Substance: ACETAMINOPHEN\TRAMADOL HYDROCHLORIDE
     Indication: Product used for unknown indication
     Dosage: 1 DF = 37,5 MG TRAMADOLUM + 325 MG PARACETAMOLUM?9TBL VJEROJATNO OD 37,5MG / 325 MG
     Route: 048
     Dates: start: 20210616, end: 20210616
  3. ZYPADHERA [Concomitant]
     Active Substance: OLANZAPINE PAMOATE
     Indication: Product used for unknown indication
     Dosage: UNK?POWDER AND SOLVENT FOR PROLONGED-RELEASE SUSPENSION FOR INJE
     Route: 030
     Dates: start: 2021
  4. NAPROXEN SODIUM [Suspect]
     Active Substance: NAPROXEN SODIUM
     Indication: Product used for unknown indication
     Dosage: 20 TBL
     Route: 048
     Dates: start: 20210616, end: 20210616
  5. GLICLAZIDE [Suspect]
     Active Substance: GLICLAZIDE
     Indication: Product used for unknown indication
     Dosage: 30 TBL OD 60 MG
     Route: 048
     Dates: start: 20210616, end: 20210616
  6. FLUPHENAZINE HYDROCHLORIDE [Suspect]
     Active Substance: FLUPHENAZINE HYDROCHLORIDE
     Indication: Product used for unknown indication
     Dosage: 2X100 TBL (DVIJE PRAZNE BOCICE) OD 2,5 MG
     Route: 048
     Dates: start: 20210616, end: 20210616
  7. LINAGLIPTIN [Suspect]
     Active Substance: LINAGLIPTIN
     Indication: Product used for unknown indication
     Dosage: 10 TBL OD 5 MG
     Route: 048
     Dates: start: 20210616, end: 20210616
  8. NORMABEL [Suspect]
     Active Substance: DIAZEPAM
     Indication: Product used for unknown indication
     Dosage: 30 TBL OD 5MG
     Route: 048
     Dates: start: 20210616, end: 20210616
  9. NORVASC [Suspect]
     Active Substance: AMLODIPINE BESYLATE
     Indication: Product used for unknown indication
     Dosage: 10 TBL OD 5 MG
     Route: 048
     Dates: start: 20210616, end: 20210616
  10. LORATADINE [Suspect]
     Active Substance: LORATADINE
     Indication: Product used for unknown indication
     Dosage: 30 TBL OD 10 MG
     Route: 048
     Dates: start: 20210616, end: 20210616
  11. ALPRAZOLAM [Suspect]
     Active Substance: ALPRAZOLAM
     Indication: Product used for unknown indication
     Dosage: 25 TBL OD 0,5 MG
     Route: 048
     Dates: start: 20210616, end: 20210616
  12. AMLODIPINE\RAMIPRIL [Suspect]
     Active Substance: AMLODIPINE\RAMIPRIL
     Indication: Product used for unknown indication
     Dosage: 1 DF = 5 MG RAMIPRILUM + 5 MG AMLODIPINUM? 30 TBL OD 5/5 MG
     Route: 048
     Dates: start: 20210616, end: 20210616
  13. KETOPROFEN [Suspect]
     Active Substance: KETOPROFEN
     Indication: Product used for unknown indication
     Route: 048
     Dates: start: 20210616, end: 20210616
  14. OLANZAPINE [Suspect]
     Active Substance: OLANZAPINE
     Indication: Product used for unknown indication
     Dosage: 37 TBL OD 10 MG
     Route: 048
     Dates: start: 20210616, end: 20210616

REACTIONS (8)
  - Coma [Unknown]
  - Hypoglycaemia [Unknown]
  - Hypotension [Unknown]
  - Pneumonia [Unknown]
  - Somnolence [Unknown]
  - Haemodynamic instability [Unknown]
  - Suicide attempt [Unknown]
  - Intentional overdose [Unknown]

NARRATIVE: CASE EVENT DATE: 20210601
